FAERS Safety Report 18549274 (Version 1)
Quarter: 2020Q4

REPORT INFORMATION
  Report Type: Report from Study
  Country: None (occurrence: US)
  Receive Date: 20201126
  Receipt Date: 20201126
  Transmission Date: 20210114
  Serious: Yes (Death, Hospitalization)
  Sender: FDA-Public Use
  Company Number: US-INSMED, INC.-US-INS-20-01573

PATIENT
  Age: 76 Year
  Sex: Female

DRUGS (2)
  1. ARIKAYCE [Suspect]
     Active Substance: AMIKACIN
     Route: 055
     Dates: start: 2020
  2. ARIKAYCE [Suspect]
     Active Substance: AMIKACIN
     Indication: MYCOBACTERIAL INFECTION
     Route: 055
     Dates: start: 20181120, end: 20200805

REACTIONS (10)
  - Hypoacusis [Recovered/Resolved]
  - Rehabilitation therapy [Unknown]
  - Weight decreased [Unknown]
  - Death [Fatal]
  - Decubitus ulcer [Unknown]
  - Dysphagia [Not Recovered/Not Resolved]
  - Dehydration [Not Recovered/Not Resolved]
  - Nausea [Unknown]
  - Dysphonia [Recovered/Resolved]
  - Asthenia [Not Recovered/Not Resolved]

NARRATIVE: CASE EVENT DATE: 20181120
